FAERS Safety Report 13226131 (Version 2)
Quarter: 2017Q1

REPORT INFORMATION
  Report Type: Report from Study
  Country: ES (occurrence: ES)
  Receive Date: 20170213
  Receipt Date: 20170224
  Transmission Date: 20170428
  Serious: No
  Sender: FDA-Public Use
  Company Number: ES-IPSEN BIOPHARMACEUTICALS, INC.-2017-01122

PATIENT
  Age: 89 Year
  Sex: Female
  Weight: 58.8 kg

DRUGS (6)
  1. ATORVASTATINA [Concomitant]
     Active Substance: ATORVASTATIN
     Dates: start: 20080101
  2. VALSARTAN. [Concomitant]
     Active Substance: VALSARTAN
     Dates: start: 20080101
  3. AAS [Concomitant]
     Active Substance: ASPIRIN
     Dates: start: 20080101
  4. OMEPRAZOL [Concomitant]
     Active Substance: OMEPRAZOLE
     Dates: start: 20080101
  5. DILTIAZEM. [Concomitant]
     Active Substance: DILTIAZEM
     Dates: start: 20080101
  6. SOMATULINE AUTOGEL 120MG [Suspect]
     Active Substance: LANREOTIDE ACETATE
     Indication: ACROMEGALY
     Dosage: 120 MG
     Route: 058
     Dates: start: 20160511, end: 20160511

REACTIONS (3)
  - Abdominal discomfort [Recovered/Resolved]
  - Oral herpes [Recovered/Resolved]
  - Decreased appetite [Recovered/Resolved]

NARRATIVE: CASE EVENT DATE: 20160512
